FAERS Safety Report 8124263-4 (Version None)
Quarter: 2012Q1

REPORT INFORMATION
  Report Type: 
  Country: None (occurrence: None)
  Receive Date: 20120209
  Receipt Date: 20120111
  Transmission Date: 20120608
  Serious: Yes (Hospitalization)
  Sender: FDA-Public Use
  Company Number: US-BAYER-2011-057070

PATIENT
  Age: 21 Year
  Sex: Female
  Weight: 56.689 kg

DRUGS (5)
  1. TETRACYCLINE [Concomitant]
     Indication: ACNE
  2. LOESTRIN 1.5/30 [Concomitant]
     Indication: CONTRACEPTION
  3. RETIN-A [Concomitant]
     Indication: ACNE
  4. NUVARING [Concomitant]
     Indication: CONTRACEPTION
  5. YAZ [Suspect]
     Dosage: UNK
     Dates: start: 20070401, end: 20070701

REACTIONS (12)
  - DYSPEPSIA [None]
  - ANXIETY [None]
  - EMOTIONAL DISORDER [None]
  - PSYCHOLOGICAL TRAUMA [None]
  - GASTRIC DISORDER [None]
  - VOMITING [None]
  - GALLBLADDER NON-FUNCTIONING [None]
  - CHOLECYSTITIS CHRONIC [None]
  - EMOTIONAL DISTRESS [None]
  - HOT FLUSH [None]
  - PAIN [None]
  - RETCHING [None]
